FAERS Safety Report 9471242 (Version 1)
Quarter: 2013Q3

REPORT INFORMATION
  Report Type: Spontaneous
  Country: US (occurrence: US)
  Receive Date: 20130822
  Receipt Date: 20130822
  Transmission Date: 20140515
  Serious: Yes (Death)
  Sender: FDA-Public Use
  Company Number: US-BRISTOL-MYERS SQUIBB COMPANY-19191444

PATIENT
  Sex: Female

DRUGS (3)
  1. BYETTA [Suspect]
     Indication: TYPE 2 DIABETES MELLITUS
     Dates: start: 201011, end: 201105
  2. JANUMET [Suspect]
     Indication: TYPE 2 DIABETES MELLITUS
     Dates: start: 200807, end: 201108
  3. JANUVIA [Suspect]
     Indication: TYPE 2 DIABETES MELLITUS
     Dates: start: 200706, end: 200807

REACTIONS (1)
  - Pancreatic carcinoma [Fatal]
